FAERS Safety Report 26128627 (Version 1)
Quarter: 2025Q4

REPORT INFORMATION
  Report Type: Spontaneous
  Country: JP (occurrence: JP)
  Receive Date: 20251207
  Receipt Date: 20251207
  Transmission Date: 20260117
  Serious: Yes (Death)
  Sender: AMGEN
  Company Number: JP-Vifor (International) Inc.-VIT-2024-09076

PATIENT
  Age: 89 Year
  Sex: Male

DRUGS (2)
  1. TAVNEOS [Suspect]
     Active Substance: AVACOPAN
     Indication: Microscopic polyangiitis
     Dosage: 60 MG, QD
     Route: 048
  2. PREDNISOLONE [Concomitant]
     Active Substance: PREDNISOLONE
     Dosage: UNK
     Route: 065

REACTIONS (2)
  - Pneumonia aspiration [Fatal]
  - Glomerular filtration rate decreased [Unknown]
